FAERS Safety Report 5223438-1 (Version None)
Quarter: 2007Q1

REPORT INFORMATION
  Report Type: 
  Country: None (occurrence: None)
  Receive Date: 20070125
  Receipt Date: 20070122
  Transmission Date: 20070707
  Serious: Yes (Hospitalization)
  Sender: FDA-Public Use
  Company Number: 229243

PATIENT
  Age: 37 Year
  Sex: Female
  Weight: 51 kg

DRUGS (3)
  1. BEVACIZUMAB(BEVACIZUMAB) PWDR + SOLVENT,INFUSION SOLN, 100MG [Suspect]
     Indication: PANCREATIC CARCINOMA METASTATIC
     Dosage: Q2W, INTRAVENOUS
     Route: 042
     Dates: start: 20060109
  2. ERLOTINIB (ERLOTINIB) TABLET [Suspect]
     Indication: PANCREATIC CARCINOMA METASTATIC
     Dosage: 100 MG, QD, ORAL
     Route: 048
     Dates: start: 20060109
  3. GEMCITABINE [Suspect]
     Indication: PANCREATIC CARCINOMA METASTATIC
     Dosage: 1510 MG, 1/WEEK, INTRAVENOUS
     Route: 042
     Dates: start: 20060109

REACTIONS (3)
  - HAEMATOCRIT DECREASED [None]
  - HAEMOGLOBIN DECREASED [None]
  - SUBILEUS [None]
